FAERS Safety Report 18589998 (Version 1)
Quarter: 2020Q4

REPORT INFORMATION
  Report Type: Spontaneous
  Country: US (occurrence: US)
  Receive Date: 20201207
  Receipt Date: 20201207
  Transmission Date: 20210114
  Serious: No
  Sender: FDA-Public Use
  Company Number: None

PATIENT
  Age: 74 Year
  Sex: Male
  Weight: 92.9 kg

DRUGS (10)
  1. HYDROXYUREA. [Concomitant]
     Active Substance: HYDROXYUREA
  2. INLYTA [Suspect]
     Active Substance: AXITINIB
     Indication: RENAL CANCER
     Route: 048
     Dates: start: 20201125
  3. TERBINAFINE HCL [Concomitant]
     Active Substance: TERBINAFINE HYDROCHLORIDE
  4. OLMESARTAN MEDOXOMIL. [Concomitant]
     Active Substance: OLMESARTAN MEDOXOMIL
  5. ASPIRIN 81 MG [Concomitant]
     Active Substance: ASPIRIN
  6. TAMSULOSIN HCL [Concomitant]
     Active Substance: TAMSULOSIN HYDROCHLORIDE
  7. INLYTA 1 MG TABLET [Concomitant]
  8. FAMOTIDINE. [Concomitant]
     Active Substance: FAMOTIDINE
  9. CARVEDILOL. [Concomitant]
     Active Substance: CARVEDILOL
  10. ATORVASTATIN CALCIUM. [Concomitant]
     Active Substance: ATORVASTATIN CALCIUM

REACTIONS (3)
  - Palmar-plantar erythrodysaesthesia syndrome [None]
  - Mucosal inflammation [None]
  - Therapy interrupted [None]

NARRATIVE: CASE EVENT DATE: 20201201
